FAERS Safety Report 8342682-8 (Version None)
Quarter: 2012Q2

REPORT INFORMATION
  Report Type: 
  Country: None (occurrence: None)
  Receive Date: 20120508
  Receipt Date: 20120424
  Transmission Date: 20120825
  Serious: Yes (Hospitalization)
  Sender: FDA-Public Use
  Company Number: DE-AMGEN-DEUSP2011046489

PATIENT
  Age: 60 Year
  Sex: Male

DRUGS (5)
  1. METFORMIN HYDROCHLORIDE [Concomitant]
     Dosage: UNK
  2. GALVUS [Concomitant]
     Dosage: UNK
  3. ENBREL [Suspect]
     Indication: PSORIATIC ARTHROPATHY
     Dosage: 50 MG, WEEKLY
     Dates: start: 20100901
  4. ENBREL [Suspect]
     Dosage: UNK
  5. ASPIRIN [Concomitant]
     Dosage: UNK

REACTIONS (6)
  - MUSCULAR WEAKNESS [None]
  - SKIN DISCOLOURATION [None]
  - HAEMATOMA [None]
  - EYE PAIN [None]
  - SWELLING FACE [None]
  - URTICARIA [None]
